FAERS Safety Report 17206175 (Version 1)
Quarter: 2020Q1

REPORT INFORMATION
  Report Type: Spontaneous
  Country: CA (occurrence: CA)
  Receive Date: 20191222
  Receipt Date: 20191222
  Transmission Date: 20200409
  Serious: Yes (Disabling, Other)
  Sender: FDA-Public Use
  Company Number: None

PATIENT
  Age: 52 Year
  Sex: Male
  Weight: 82.8 kg

DRUGS (2)
  1. UDREAM FULL NIGHT [Suspect]
     Active Substance: HERBALS
     Indication: INSOMNIA
     Dates: start: 20190802, end: 20191204
  2. ESTAZOLAM. [Suspect]
     Active Substance: ESTAZOLAM

REACTIONS (6)
  - Eating disorder [None]
  - Thinking abnormal [None]
  - Depression [None]
  - Withdrawal syndrome [None]
  - Anxiety [None]
  - Sleep disorder [None]

NARRATIVE: CASE EVENT DATE: 20191205
